FAERS Safety Report 16161784 (Version 2)
Quarter: 2019Q2

REPORT INFORMATION
  Report Type: Spontaneous
  Country: US (occurrence: US)
  Receive Date: 20190405
  Receipt Date: 20190408
  Transmission Date: 20190711
  Serious: Yes (Other)
  Sender: FDA-Public Use
  Company Number: US-PFIZER INC-2019137981

PATIENT
  Sex: Male

DRUGS (1)
  1. LYRICA CR [Suspect]
     Active Substance: PREGABALIN
     Dosage: UNK

REACTIONS (2)
  - Product residue present [Unknown]
  - Drug ineffective [Unknown]
